FAERS Safety Report 6861727-5 (Version None)
Quarter: 2010Q3

REPORT INFORMATION
  Report Type: 
  Country: None (occurrence: None)
  Receive Date: 20100721
  Receipt Date: 20100712
  Transmission Date: 20110219
  Serious: No
  Sender: FDA-Public Use
  Company Number: US-BIOGENIDEC-2010BI024049

PATIENT
  Age: 52 Year
  Sex: Female

DRUGS (1)
  1. TYSABRI [Suspect]
     Indication: MULTIPLE SCLEROSIS
     Route: 042
     Dates: start: 20100209

REACTIONS (7)
  - DRUG INEFFECTIVE [None]
  - EXFOLIATIVE RASH [None]
  - FALL [None]
  - INFUSION SITE HAEMATOMA [None]
  - MEMORY IMPAIRMENT [None]
  - POLLAKIURIA [None]
  - POOR VENOUS ACCESS [None]
